FAERS Safety Report 4395599-8 (Version None)
Quarter: 2004Q3

REPORT INFORMATION
  Report Type: 
  Country: None (occurrence: None)
  Receive Date: 20040712
  Receipt Date: 20040712
  Transmission Date: 20050211
  Serious: Yes (Other)
  Sender: FDA-Public Use
  Company Number: None

PATIENT
  Age: 79 Year
  Sex: Male
  Weight: 91.6 kg

DRUGS (9)
  1. TERAZOSIN HCL [Suspect]
  2. FINASTERIDE [Concomitant]
  3. FOSINOPRIL NA [Concomitant]
  4. GABAPENTIN [Concomitant]
  5. PRECISION Q-I-D GLUCOSE TEST STRIP [Concomitant]
  6. GLYBURIDE [Concomitant]
  7. CLOPIDOGREL BISULFATE [Concomitant]
  8. LANCET [Concomitant]
  9. CYCLOBENZAPRINE HCL [Concomitant]

REACTIONS (1)
  - DIZZINESS [None]
